FAERS Safety Report 4681362-7 (Version None)
Quarter: 2005Q2

REPORT INFORMATION
  Report Type: 
  Country: None (occurrence: None)
  Receive Date: 20050601
  Receipt Date: 20050516
  Transmission Date: 20051028
  Serious: Yes (Death)
  Sender: FDA-Public Use
  Company Number: 8008610

PATIENT
  Age: 66 Year
  Sex: Female
  Weight: 72.72 kg

DRUGS (13)
  1. KEPPRA [Suspect]
     Indication: GRAND MAL CONVULSION
     Dosage: 500 MG 2/D PO
     Route: 048
     Dates: start: 20041201, end: 20050201
  2. PLAVIX [Concomitant]
  3. NORVASC /00972401/ [Concomitant]
  4. IMDUR [Concomitant]
  5. LOPRESSOR [Concomitant]
  6. LIPITOR /01326101/ [Concomitant]
  7. ATROVENT [Concomitant]
  8. PROTONIX /01263201/ [Concomitant]
  9. CYSTOSPAZ [Concomitant]
  10. NITROGLYCERIN [Concomitant]
  11. ALPHAGAN [Concomitant]
  12. LUMIGAN [Concomitant]
  13. MULTIVITAMIN /00831701/ [Concomitant]

REACTIONS (9)
  - ASTHENIA [None]
  - CEREBROVASCULAR ACCIDENT [None]
  - CHILLS [None]
  - COUGH [None]
  - FEELING COLD [None]
  - GENERAL PHYSICAL HEALTH DETERIORATION [None]
  - HYPERLIPIDAEMIA [None]
  - HYPERTENSION [None]
  - PNEUMONIA [None]
